FAERS Safety Report 4279917-7 (Version None)
Quarter: 2004Q1

REPORT INFORMATION
  Report Type: 
  Country: None (occurrence: None)
  Receive Date: 20040122
  Receipt Date: 20040106
  Transmission Date: 20041129
  Serious: Yes (Hospitalization)
  Sender: FDA-Public Use
  Company Number: 171287

PATIENT
  Age: 43 Year
  Sex: Female

DRUGS (8)
  1. AVONEX [Suspect]
     Indication: MULTIPLE SCLEROSIS
     Dosage: 30 MCG QW IM
     Route: 030
  2. DOXEPIN [Concomitant]
  3. TREVILOR [Concomitant]
  4. CITALOPRAM [Concomitant]
  5. ANAFRANIL [Concomitant]
  6. PROMETHAZIN ^NEURAXPHARM^ [Concomitant]
  7. INSIDON [Concomitant]
  8. TAVOR [Concomitant]

REACTIONS (7)
  - ANXIETY DISORDER [None]
  - ASTHENIA [None]
  - DEMYELINATION [None]
  - DEPENDENT PERSONALITY DISORDER [None]
  - DIFFICULTY IN WALKING [None]
  - NYSTAGMUS [None]
  - PHOBIA [None]
